FAERS Safety Report 6307276-4 (Version None)
Quarter: 2009Q3

REPORT INFORMATION
  Report Type: 
  Country: None (occurrence: None)
  Receive Date: 20090813
  Receipt Date: 20090803
  Transmission Date: 20100115
  Serious: Yes (Death)
  Sender: FDA-Public Use
  Company Number: NZ-PFIZER INC-2009251552

PATIENT

DRUGS (2)
  1. MEDROXYPROGESTERONE ACETATE AND MEDROXYPROGESTERONE [Suspect]
  2. TRANEXAMIC ACID [Suspect]

REACTIONS (2)
  - CAROTID ARTERY THROMBOSIS [None]
  - CEREBRAL INFARCTION [None]
